FAERS Safety Report 14798894 (Version 1)
Quarter: 2018Q2

REPORT INFORMATION
  Report Type: Report from Study
  Country: FR (occurrence: FR)
  Receive Date: 20180424
  Receipt Date: 20180424
  Transmission Date: 20180711
  Serious: Yes (Hospitalization, Other)
  Sender: FDA-Public Use
  Company Number: FR-TEVA-2018-FR-884778

PATIENT
  Age: 75 Year
  Sex: Male

DRUGS (7)
  1. BENDAMUSTINE HYDROCHLORIDE. [Suspect]
     Active Substance: BENDAMUSTINE HYDROCHLORIDE
     Route: 042
     Dates: start: 20170608, end: 20170608
  2. BENDAMUSTINE HYDROCHLORIDE. [Suspect]
     Active Substance: BENDAMUSTINE HYDROCHLORIDE
     Indication: MYCOSIS FUNGOIDES
     Route: 042
     Dates: start: 20170411, end: 20170509
  3. PERFALGAN [Concomitant]
     Active Substance: ACETAMINOPHEN
     Indication: MYCOSIS FUNGOIDES
     Route: 042
     Dates: start: 20170410, end: 20170510
  4. BRENTUXIMAB VEDOTIN [Suspect]
     Active Substance: BRENTUXIMAB VEDOTIN
     Indication: MYCOSIS FUNGOIDES
     Route: 042
     Dates: start: 20170410, end: 20170509
  5. BRENTUXIMAB VEDOTIN [Suspect]
     Active Substance: BRENTUXIMAB VEDOTIN
     Route: 042
  6. POLARAMINE [Concomitant]
     Active Substance: DEXCHLORPHENIRAMINE MALEATE
     Indication: MYCOSIS FUNGOIDES
     Route: 042
     Dates: start: 20170410, end: 20170509
  7. ZOPHREN                            /00955301/ [Concomitant]
     Active Substance: ONDANSETRON
     Indication: MYCOSIS FUNGOIDES
     Route: 042
     Dates: start: 20170410, end: 20170509

REACTIONS (8)
  - Cytokine release syndrome [Recovering/Resolving]
  - Anaphylactic reaction [Recovered/Resolved]
  - Anaphylactoid reaction [Recovering/Resolving]
  - Weight decreased [Unknown]
  - Hyperthermia [Recovering/Resolving]
  - Rash erythematous [Recovering/Resolving]
  - Chills [Recovering/Resolving]
  - Off label use [Unknown]

NARRATIVE: CASE EVENT DATE: 201705
